FAERS Safety Report 4635550-6 (Version None)
Quarter: 2005Q2

REPORT INFORMATION
  Report Type: 
  Country: None (occurrence: None)
  Receive Date: 20050414
  Receipt Date: 20050330
  Transmission Date: 20051028
  Serious: No
  Sender: FDA-Public Use
  Company Number: 10698

PATIENT
  Age: 45 Year
  Sex: Female

DRUGS (3)
  1. CARBOPLATIN [Suspect]
     Dosage: 750 MG IV
     Route: 042
     Dates: start: 20040722, end: 20040722
  2. DOLASETRON [Concomitant]
  3. DEXAMETHASONE [Concomitant]

REACTIONS (3)
  - ERYTHEMA [None]
  - HOT FLUSH [None]
  - POST PROCEDURAL NAUSEA [None]
